FAERS Safety Report 9772142 (Version 1)
Quarter: 2013Q4

REPORT INFORMATION
  Report Type: Spontaneous
  Country: US (occurrence: None)
  Receive Date: 20131218
  Receipt Date: 20131218
  Transmission Date: 20140711
  Serious: Yes (Disabling)
  Sender: FDA-Public Use
  Company Number: None

PATIENT
  Age: 35 Year
  Sex: Female
  Weight: 67.13 kg

DRUGS (1)
  1. LUPRON [Suspect]
     Indication: UTERINE LEIOMYOMA
     Dosage: ONCE 3 MONTHS INTO THE MUSCLE
     Dates: start: 20121226

REACTIONS (9)
  - Abdominal pain [None]
  - Nausea [None]
  - Dizziness [None]
  - Weight decreased [None]
  - Palpitations [None]
  - Blood pressure increased [None]
  - Hyperthyroidism [None]
  - Loss of employment [None]
  - Impaired work ability [None]
